FAERS Safety Report 7065189-7 (Version None)
Quarter: 2010Q4

REPORT INFORMATION
  Report Type: 
  Country: None (occurrence: None)
  Receive Date: 20101022
  Receipt Date: 20101022
  Transmission Date: 20110411
  Serious: Yes (Other)
  Sender: FDA-Public Use
  Company Number: None

PATIENT
  Age: 79 Year
  Sex: Female
  Weight: 95.2554 kg

DRUGS (1)
  1. FLUTICASONE PROPIONATE [Suspect]
     Indication: HERPES ZOSTER
     Dosage: 2 SPRAYS 1 ONCE DAY NOSE
     Route: 045
     Dates: start: 20100914

REACTIONS (1)
  - HERPES ZOSTER [None]
